FAERS Safety Report 22329550 (Version 1)
Quarter: 2023Q2

REPORT INFORMATION
  Report Type: Spontaneous
  Country: US (occurrence: None)
  Receive Date: 20230517
  Receipt Date: 20230517
  Transmission Date: 20230721
  Serious: No
  Sender: FDA-Public Use
  Company Number: US-ROCHE-3081887

PATIENT
  Sex: Female

DRUGS (3)
  1. ACTEMRA [Suspect]
     Active Substance: TOCILIZUMAB
     Indication: COVID-19 pneumonia
     Dosage: 800 MG 40 ML INJECTION IVPB
     Route: 042
  2. ACTEMRA [Suspect]
     Active Substance: TOCILIZUMAB
     Indication: COVID-19
  3. ACTEMRA [Suspect]
     Active Substance: TOCILIZUMAB
     Indication: Acute respiratory failure

REACTIONS (2)
  - Intentional product use issue [Unknown]
  - No adverse event [Unknown]
